FAERS Safety Report 5416387-7 (Version None)
Quarter: 2007Q3

REPORT INFORMATION
  Report Type: 
  Country: None (occurrence: None)
  Receive Date: 20070816
  Receipt Date: 20070810
  Transmission Date: 20080115
  Serious: Yes (Other)
  Sender: FDA-Public Use
  Company Number: PHNU2007DE02806

PATIENT
  Age: 64 Year
  Sex: Female

DRUGS (8)
  1. AREDIA [Suspect]
     Indication: MULTIPLE MYELOMA
     Route: 042
     Dates: start: 20000701
  2. CLINDAMYCIN HCL [Concomitant]
     Route: 065
  3. ASPIRIN [Concomitant]
     Dosage: 100 MG, QD
     Route: 065
  4. LISIHEXAL [Concomitant]
     Dosage: 10 MG, QD
     Route: 065
  5. CALCILAC KT [Concomitant]
     Dosage: UNK, QD
     Route: 065
  6. MAREEN [Concomitant]
     Dosage: 37.5 MG, QD
     Route: 065
  7. PENTAERYTHRITOL TETRANITRATE [Concomitant]
     Dosage: 50 MG, QD
     Route: 065
  8. QUERTO [Concomitant]
     Dosage: 50 MG, QD
     Route: 065

REACTIONS (8)
  - ACTINOMYCOSIS [None]
  - HISTOLOGY ABNORMAL [None]
  - JAW DISORDER [None]
  - ORAL SURGERY [None]
  - OSTEONECROSIS [None]
  - SCINTIGRAPHY [None]
  - TOOTH EXTRACTION [None]
  - X-RAY DENTAL [None]
